FAERS Safety Report 7505195-9 (Version None)
Quarter: 2011Q2

REPORT INFORMATION
  Report Type: 
  Country: None (occurrence: None)
  Receive Date: 20110526
  Receipt Date: 20110520
  Transmission Date: 20111010
  Serious: Yes (Hospitalization)
  Sender: FDA-Public Use
  Company Number: US-ABBOTT-11P-163-0727678-00

PATIENT
  Age: 75 Year
  Sex: Male

DRUGS (13)
  1. ASPIRIN [Concomitant]
     Indication: ATRIAL FIBRILLATION
  2. HYDROCODONE BITARTRATE AND ACETAMINOPHEN [Concomitant]
     Indication: PAIN
     Dosage: 7.5/325 AS NEEDED
  3. CENTRUM SILVER [Concomitant]
     Indication: VITAMIN SUPPLEMENTATION
  4. HUMIRA [Suspect]
     Indication: PSORIASIS
     Dates: start: 20110416
  5. CYMBALTA [Concomitant]
     Indication: DEPRESSION
  6. FENTANYL [Concomitant]
     Indication: PAIN
     Dosage: CHANGE EVERY 3 DAYS
  7. GLUCOPHAGE [Concomitant]
     Indication: DIABETES MELLITUS
     Dosage: 1 WITH BREAKFAST 1 WITH DINNER
  8. NORTRIPTYLINE HCL [Concomitant]
     Indication: GASTRIC DISORDER
     Dosage: QHS
  9. PRILOSEC [Concomitant]
     Indication: GASTROOESOPHAGEAL REFLUX DISEASE
  10. TOPROL-XL [Concomitant]
     Indication: ATRIAL FIBRILLATION
  11. REQUIP [Concomitant]
     Indication: RESTLESS LEGS SYNDROME
     Dosage: AT BEDTIME
  12. XANAX [Concomitant]
     Indication: ANXIETY
     Dosage: QHS
  13. OSCAL [Concomitant]
     Indication: MINERAL SUPPLEMENTATION

REACTIONS (5)
  - SCAB [None]
  - ERYTHEMA [None]
  - LOCALISED INFECTION [None]
  - FEELING HOT [None]
  - PURULENT DISCHARGE [None]
